FAERS Safety Report 18991668 (Version 1)
Quarter: 2021Q1

REPORT INFORMATION
  Report Type: Spontaneous
  Country: ES (occurrence: ES)
  Receive Date: 20210310
  Receipt Date: 20210310
  Transmission Date: 20210420
  Serious: Yes (Other)
  Sender: FDA-Public Use
  Company Number: ES-TEVA-2021-ES-1887631

PATIENT
  Age: 27 Year
  Sex: Male

DRUGS (5)
  1. ALPRAZOLAM. [Suspect]
     Active Substance: ALPRAZOLAM
     Indication: DRUG ABUSE
     Dosage: CONSUMING UP TO 8MG/DAY
     Route: 048
  2. PREGABALIN. [Suspect]
     Active Substance: PREGABALIN
     Indication: DRUG ABUSE
     Dosage: 150 MILLIGRAM DAILY; AT NIGHT
     Route: 048
  3. PREGABALIN. [Suspect]
     Active Substance: PREGABALIN
     Indication: INSOMNIA
     Dosage: HE ABUSED WITH INTAKE OF ABOUT 20 CAPSULES OF 150 MG (EQUIVALENT TO ABOUT 3 G) IN EACH INTAKE, EM...
     Route: 048
  4. PREGABALIN. [Suspect]
     Active Substance: PREGABALIN
     Route: 054
  5. TOPIRAMATE. [Suspect]
     Active Substance: TOPIRAMATE
     Indication: DRUG ABUSE
     Dosage: PROGRESSIVE AND SLOWLY ASCENDING DOSES, UP TO A TOTAL OF 400 MG DAILY IN 6 WEEKS
     Route: 065

REACTIONS (9)
  - Irritability [Recovering/Resolving]
  - Drug dependence [Recovering/Resolving]
  - Off label use [Unknown]
  - Drug abuse [Recovering/Resolving]
  - Tremor [Recovering/Resolving]
  - Anxiety [Recovering/Resolving]
  - Withdrawal syndrome [Recovering/Resolving]
  - Hyperhidrosis [Recovering/Resolving]
  - Insomnia [Recovering/Resolving]
